FAERS Safety Report 12077882 (Version 1)
Quarter: 2016Q1

REPORT INFORMATION
  Report Type: Spontaneous
  Country: US (occurrence: US)
  Receive Date: 20160215
  Receipt Date: 20160215
  Transmission Date: 20160526
  Serious: No
  Sender: FDA-Public Use
  Company Number: US-BAXALTA-2016BLT000836

PATIENT
  Age: 68 Year
  Sex: Female
  Weight: 121.8 kg

DRUGS (2)
  1. HYQVIA [Suspect]
     Active Substance: HUMAN IMMUNOGLOBULIN G\HYALURONIDASE RECOMBINANT HUMAN
     Dosage: 10 G, 1X A MONTH
     Route: 058
     Dates: start: 20160211
  2. HYQVIA [Suspect]
     Active Substance: HUMAN IMMUNOGLOBULIN G\HYALURONIDASE RECOMBINANT HUMAN
     Indication: PRIMARY IMMUNODEFICIENCY SYNDROME
     Dosage: 30 G, 1X A MONTH
     Route: 058
     Dates: start: 20160211

REACTIONS (5)
  - Feeling hot [Recovered/Resolved]
  - Pain [Recovering/Resolving]
  - Pyrexia [Recovered/Resolved]
  - Infusion site erythema [Recovering/Resolving]
  - Pruritus [Recovering/Resolving]

NARRATIVE: CASE EVENT DATE: 20160211
